FAERS Safety Report 23034821 (Version 1)
Quarter: 2023Q4

REPORT INFORMATION
  Report Type: Spontaneous
  Country: US (occurrence: US)
  Receive Date: 20231005
  Receipt Date: 20231005
  Transmission Date: 20240109
  Serious: No
  Sender: FDA-Public Use
  Company Number: US-PFIZER INC-PV202300164294

PATIENT
  Age: 70 Year
  Sex: Male
  Weight: 100.31 kg

DRUGS (1)
  1. IBRANCE [Suspect]
     Active Substance: PALBOCICLIB
     Dosage: 125 MG, CYCLIC [1 CAPSULE WITH FOOD ORALLY ONCE A DAY FOR 21 DAYS OF A 28 DAY CYCLE, 3 REFILLS]
     Route: 048

REACTIONS (1)
  - Neoplasm progression [Unknown]
